FAERS Safety Report 17921467 (Version 1)
Quarter: 2020Q2

REPORT INFORMATION
  Report Type: Spontaneous
  Country: US (occurrence: US)
  Receive Date: 20200619
  Receipt Date: 20200619
  Transmission Date: 20200714
  Serious: Yes (Hospitalization)
  Sender: FDA-Public Use
  Company Number: None

PATIENT
  Age: 65 Year
  Sex: Male

DRUGS (1)
  1. TALTZ [Suspect]
     Active Substance: IXEKIZUMAB
     Indication: PSORIASIS
     Dosage: OTHER DOSE:1 PEN;?
     Route: 058
     Dates: start: 20181010

REACTIONS (2)
  - Appendicitis perforated [None]
  - Abscess [None]

NARRATIVE: CASE EVENT DATE: 20200523
